FAERS Safety Report 8583784-0 (Version None)
Quarter: 2012Q3

REPORT INFORMATION
  Report Type: 
  Country: None (occurrence: None)
  Receive Date: 20120810
  Receipt Date: 20120730
  Transmission Date: 20120928
  Serious: Yes (Other)
  Sender: FDA-Public Use
  Company Number: MX-MSD-1208MEX000231

PATIENT

DRUGS (4)
  1. VIREAD [Suspect]
     Dosage: 300 MG, QD
     Route: 048
     Dates: start: 20120328, end: 20120523
  2. ISENTRESS [Suspect]
     Dosage: 400 MG, QD
     Route: 048
     Dates: start: 20120328, end: 20120523
  3. KALETRA [Suspect]
     Dosage: 4 DF, UNK
     Route: 048
     Dates: start: 20120528
  4. COMBIVIR [Suspect]
     Dosage: 2 DF, UNK
     Route: 048
     Dates: start: 20120528

REACTIONS (2)
  - MATERNAL EXPOSURE DURING PREGNANCY [None]
  - ABORTION SPONTANEOUS [None]
